FAERS Safety Report 16521522 (Version 9)
Quarter: 2019Q4

REPORT INFORMATION
  Report Type: Spontaneous
  Country: US (occurrence: US)
  Receive Date: 20190702
  Receipt Date: 20191008
  Transmission Date: 20200122
  Serious: Yes (Other)
  Sender: FDA-Public Use
  Company Number: US-PFIZER INC-2018515091

PATIENT
  Age: 62 Year
  Sex: Female

DRUGS (7)
  1. SKELAXIN [Suspect]
     Active Substance: METAXALONE
     Indication: DEPRESSION
     Dosage: 800 MG, UNK
     Dates: start: 1997
  2. SKELAXIN [Suspect]
     Active Substance: METAXALONE
     Indication: SPINAL OSTEOARTHRITIS
  3. SKELAXIN [Suspect]
     Active Substance: METAXALONE
     Indication: SPINAL FUSION SURGERY
  4. SKELAXIN [Suspect]
     Active Substance: METAXALONE
     Indication: SKIN GRAFT
  5. SKELAXIN [Suspect]
     Active Substance: METAXALONE
     Indication: INTERVERTEBRAL DISC DEGENERATION
     Dosage: 800 MG, 3X/DAY AS NEEDED
     Route: 048
     Dates: start: 1996
  6. SKELAXIN [Suspect]
     Active Substance: METAXALONE
     Indication: LETHARGY
  7. SKELAXIN [Suspect]
     Active Substance: METAXALONE
     Indication: SPINAL DEFORMITY

REACTIONS (5)
  - Neck pain [Unknown]
  - Drug dependence [Unknown]
  - Condition aggravated [Unknown]
  - Malaise [Unknown]
  - Pain [Unknown]
